FAERS Safety Report 5031659-6 (Version None)
Quarter: 2006Q2

REPORT INFORMATION
  Report Type: 
  Country: None (occurrence: None)
  Receive Date: 20060616
  Receipt Date: 20060608
  Transmission Date: 20061013
  Serious: Yes (Other)
  Sender: FDA-Public Use
  Company Number: 2006-DE-02293GD

PATIENT
  Age: 76 Year
  Sex: Female

DRUGS (1)
  1. PREDNISONE TAB [Suspect]
     Indication: TEMPORAL ARTERITIS
     Dosage: 15 MG (10 MG IN THE MORNING AND 5 MG IN THE EVENING)

REACTIONS (1)
  - MENINGITIS CRYPTOCOCCAL [None]
